FAERS Safety Report 9715267 (Version 3)
Quarter: 2014Q1

REPORT INFORMATION
  Report Type: Spontaneous
  Country: IT (occurrence: IT)
  Receive Date: 20131127
  Receipt Date: 20140320
  Transmission Date: 20141002
  Serious: Yes (Hospitalization)
  Sender: FDA-Public Use
  Company Number: IT-ROCHE-1309058

PATIENT
  Sex: Female

DRUGS (11)
  1. XOLAIR [Suspect]
     Indication: ASTHMA
     Route: 058
     Dates: start: 20111115, end: 20130912
  2. XOLAIR [Suspect]
     Indication: CHRONIC RESPIRATORY FAILURE
     Route: 058
     Dates: start: 20131228
  3. XOLAIR [Suspect]
     Route: 058
     Dates: start: 20131206
  4. INSULIN [Concomitant]
  5. SINGULAIR [Concomitant]
  6. FORMODUAL [Concomitant]
  7. ALVESCO [Concomitant]
  8. CRESTOR [Concomitant]
  9. LANOXIN [Concomitant]
  10. OLMETEC [Concomitant]
  11. CARDIRENE [Concomitant]

REACTIONS (1)
  - Pulmonary microemboli [Recovered/Resolved]
